FAERS Safety Report 17570976 (Version 1)
Quarter: 2020Q1

REPORT INFORMATION
  Report Type: Spontaneous
  Country: US (occurrence: US)
  Receive Date: 20200323
  Receipt Date: 20200323
  Transmission Date: 20200409
  Serious: No
  Sender: FDA-Public Use
  Company Number: US-PFIZER INC-2020121079

PATIENT
  Age: 76 Year
  Sex: Male
  Weight: 112.9 kg

DRUGS (2)
  1. DAPTOMYCIN. [Suspect]
     Active Substance: DAPTOMYCIN
     Indication: POSTOPERATIVE WOUND INFECTION
  2. DAPTOMYCIN. [Suspect]
     Active Substance: DAPTOMYCIN
     Indication: CORYNEBACTERIUM INFECTION
     Dosage: 500 MG, UNK (ADMINISTERED INTRAVENOUSLY BY TO A PERIPHERALLY INSERTED CENTRAL CATHETER (PICC LINE))
     Route: 042
     Dates: start: 202003

REACTIONS (3)
  - Product use in unapproved indication [Unknown]
  - Neoplasm progression [Unknown]
  - Off label use [Unknown]

NARRATIVE: CASE EVENT DATE: 202003
